APPROVED DRUG PRODUCT: LIDOCAINE
Active Ingredient: LIDOCAINE
Strength: 5%
Dosage Form/Route: OINTMENT;TOPICAL
Application: A208604 | Product #001
Applicant: RISING PHARMA HOLDINGS INC
Approved: Sep 20, 2017 | RLD: No | RS: No | Type: DISCN